FAERS Safety Report 17978818 (Version 3)
Quarter: 2020Q3

REPORT INFORMATION
  Report Type: Spontaneous
  Country: BE (occurrence: BE)
  Receive Date: 20200703
  Receipt Date: 20200727
  Transmission Date: 20201103
  Serious: Yes (Other)
  Sender: FDA-Public Use
  Company Number: BE-PFIZER INC-2020253437

PATIENT
  Age: 52 Year
  Sex: Male

DRUGS (1)
  1. LYRICA [Suspect]
     Active Substance: PREGABALIN
     Indication: PAIN
     Dosage: 75 MG, SINGLE
     Dates: start: 20200630, end: 20200630

REACTIONS (19)
  - Dysphemia [Unknown]
  - Malaise [Unknown]
  - Blindness transient [Unknown]
  - Confusional state [Unknown]
  - Dyskinesia [Unknown]
  - Burning sensation [Unknown]
  - Abdominal pain upper [Recovered/Resolved]
  - Tic [Unknown]
  - Tremor [Recovered/Resolved]
  - Disturbance in attention [Recovered/Resolved]
  - Sciatica [Unknown]
  - Migraine [Recovered/Resolved]
  - Visual impairment [Recovered/Resolved]
  - Muscle spasms [Recovered/Resolved]
  - Diarrhoea [Recovered/Resolved]
  - Speech disorder [Unknown]
  - Gait disturbance [Unknown]
  - Seizure [Unknown]
  - Feeling drunk [Unknown]

NARRATIVE: CASE EVENT DATE: 20200630
